FAERS Safety Report 5100511-X (Version None)
Quarter: 2006Q3

REPORT INFORMATION
  Report Type: 
  Country: None (occurrence: None)
  Receive Date: 20060907
  Receipt Date: 20060907
  Transmission Date: 20061208
  Serious: Yes (Hospitalization)
  Sender: FDA-Public Use
  Company Number: None

PATIENT
  Age: 58 Year
  Sex: Male

DRUGS (7)
  1. GLYBURIDE [Suspect]
     Indication: DIABETES MELLITUS
     Dates: start: 20060615, end: 20060623
  2. ROSIGLITAZONE [Suspect]
     Indication: DIABETES MELLITUS
     Dates: start: 20060615, end: 20060623
  3. LANTUS [Concomitant]
  4. INSULIN REGULAR- NOVOLIN R- [Concomitant]
  5. GLUCOTROL [Concomitant]
  6. BENZTROPINE MESYLATE [Concomitant]
  7. GEMFIBROZIL [Concomitant]

REACTIONS (4)
  - BLOOD GLUCOSE INCREASED [None]
  - GLYCOSYLATED HAEMOGLOBIN INCREASED [None]
  - HYPOGLYCAEMIA [None]
  - MENTAL DISORDER [None]
